FAERS Safety Report 23577091 (Version 19)
Quarter: 2025Q2

REPORT INFORMATION
  Report Type: Report from Study
  Country: US (occurrence: US)
  Receive Date: 20240228
  Receipt Date: 20250410
  Transmission Date: 20250716
  Serious: Yes (Other)
  Sender: NOVARTIS
  Company Number: US-002147023-NVSC2024US027511

PATIENT
  Sex: Male

DRUGS (2)
  1. KESIMPTA [Suspect]
     Active Substance: OFATUMUMAB
     Indication: Relapsing multiple sclerosis
     Dosage: 20 MG, QW
     Route: 058
     Dates: start: 20240202
  2. KESIMPTA [Suspect]
     Active Substance: OFATUMUMAB
     Route: 065

REACTIONS (19)
  - Lower respiratory tract infection [Unknown]
  - Pain [Unknown]
  - Somnolence [Recovered/Resolved]
  - Influenza like illness [Recovering/Resolving]
  - Pyrexia [Unknown]
  - Migraine [Unknown]
  - Muscle spasms [Not Recovered/Not Resolved]
  - Injection site haemorrhage [Recovered/Resolved]
  - Injection site swelling [Recovered/Resolved]
  - Injection site induration [Recovered/Resolved]
  - Pain in extremity [Not Recovered/Not Resolved]
  - Muscular weakness [Unknown]
  - Injection site irritation [Recovered/Resolved]
  - Injection site pruritus [Recovered/Resolved]
  - Injection site erythema [Recovered/Resolved]
  - Injection site reaction [Unknown]
  - Fatigue [Unknown]
  - Tendonitis [Unknown]
  - Therapeutic response shortened [Unknown]
